FAERS Safety Report 8213588-X (Version None)
Quarter: 2012Q1

REPORT INFORMATION
  Report Type: 
  Country: None (occurrence: None)
  Receive Date: 20120315
  Receipt Date: 20120307
  Transmission Date: 20120608
  Serious: Yes (Hospitalization)
  Sender: FDA-Public Use
  Company Number: JP-ASTRAZENECA-2012SE17184

PATIENT
  Age: 70 Year
  Sex: Male

DRUGS (4)
  1. MEROPENEM [Suspect]
     Route: 042
  2. MEROPENEM [Suspect]
     Indication: CHOLANGITIS
     Route: 042
  3. POLYGAM S/D [Concomitant]
  4. MEROPENEM [Suspect]
     Route: 042

REACTIONS (1)
  - RENAL FAILURE [None]
